FAERS Safety Report 17049805 (Version 1)
Quarter: 2019Q4

REPORT INFORMATION
  Report Type: Spontaneous
  Country: DE (occurrence: DE)
  Receive Date: 20191119
  Receipt Date: 20191119
  Transmission Date: 20200122
  Serious: Yes (Other)
  Sender: FDA-Public Use
  Company Number: DE-MYLANLABS-2019M1110085

PATIENT
  Age: 47 Year
  Sex: Female
  Weight: 65 kg

DRUGS (12)
  1. QUETIAPINE. [Suspect]
     Active Substance: QUETIAPINE
     Indication: DEPRESSION
     Dosage: BIS 150 MG/D,100-150 RET., 50-75 UNRET
     Route: 048
     Dates: start: 20180310, end: 20181211
  2. PROLUTON                           /00073202/ [Concomitant]
     Indication: PROPHYLAXIS OF ABORTION
     Dosage: 500 MILLIGRAM, Q3D
     Route: 030
     Dates: start: 20180328, end: 20180419
  3. ASPIRIN. [Concomitant]
     Active Substance: ASPIRIN
     Indication: PROPHYLAXIS
     Dosage: 100 MILLIGRAM, QD
     Route: 048
  4. VAXIGRIPTETRA [Concomitant]
     Active Substance: INFLUENZA VIRUS VACCINE QUADRIVALENT TYPE A+B
     Indication: IMMUNISATION
     Dosage: UNK
     Route: 030
  5. PREDNISOLON                        /00016201/ [Concomitant]
     Active Substance: PREDNISOLONE
     Indication: INFERTILITY FEMALE
     Dosage: 15 MILLIGRAM, QD, BIS 5
     Route: 048
     Dates: start: 20180324, end: 20180424
  6. XYLOMETAZOLINE [Concomitant]
     Active Substance: XYLOMETAZOLINE
     Indication: NASAL CONGESTION
     Dosage: UNK
     Route: 045
  7. ACTRAPID [Concomitant]
     Active Substance: INSULIN HUMAN
     Indication: GESTATIONAL DIABETES
     Dosage: UNK
     Route: 058
  8. L-THYROXIN                         /00068001/ [Concomitant]
     Active Substance: LEVOTHYROXINE
     Indication: HYPOTHYROIDISM
     Dosage: 100 MICROGRAM, QD, BIS 50 ?G/D
     Route: 048
     Dates: start: 20180310, end: 20181023
  9. CLEXANE [Concomitant]
     Active Substance: ENOXAPARIN SODIUM
     Indication: PROPHYLAXIS OF ABORTION
     Dosage: UNK
     Route: 058
     Dates: start: 20180328, end: 20180421
  10. COLECALCIFEROL [Concomitant]
     Active Substance: CHOLECALCIFEROL
     Indication: VITAMIN D DEFICIENCY
     Dosage: 20000 [I.E./WK ]
     Route: 048
  11. PROLUTEX [Concomitant]
     Active Substance: PROGESTERONE
     Indication: PROPHYLAXIS OF ABORTION
     Dosage: 200 MILLIGRAM, QD
     Route: 058
     Dates: start: 20180413, end: 20180419
  12. FAMENITA [Concomitant]
     Active Substance: PROGESTERONE
     Indication: PROPHYLAXIS OF ABORTION
     Dosage: 600 MILLIGRAM, QD, 3X200
     Route: 067

REACTIONS (3)
  - Polyhydramnios [Recovered/Resolved]
  - Gestational diabetes [Recovered/Resolved]
  - Maternal exposure during pregnancy [Unknown]
